FAERS Safety Report 19993347 (Version 1)
Quarter: 2021Q4

REPORT INFORMATION
  Report Type: Spontaneous
  Country: US (occurrence: US)
  Receive Date: 20211025
  Receipt Date: 20211025
  Transmission Date: 20220303
  Serious: No
  Sender: FDA-Public Use
  Company Number: US-ABBVIE-21K-163-4116860-00

PATIENT
  Sex: Female

DRUGS (1)
  1. LUPRON DEPOT [Suspect]
     Active Substance: LEUPROLIDE ACETATE
     Indication: Uterine leiomyoma
     Route: 065

REACTIONS (17)
  - Hyperthyroidism [Unknown]
  - Autoimmune thyroiditis [Unknown]
  - Eye injury [Unknown]
  - Nerve injury [Unknown]
  - Goitre [Unknown]
  - Abdominal discomfort [Unknown]
  - Gastrointestinal disorder [Unknown]
  - Functional gastrointestinal disorder [Unknown]
  - Diverticulum [Unknown]
  - Urinary incontinence [Unknown]
  - Pelvic discomfort [Unknown]
  - Gait disturbance [Unknown]
  - Visual impairment [Unknown]
  - Dysstasia [Unknown]
  - Pneumonia [Unknown]
  - Vulvovaginal mycotic infection [Unknown]
  - Uterine leiomyoma [Unknown]
